FAERS Safety Report 8718212 (Version 3)
Quarter: 2013Q1

REPORT INFORMATION
  Report Type: Spontaneous
  Country: US (occurrence: US)
  Receive Date: 20120810
  Receipt Date: 20130111
  Transmission Date: 20140127
  Serious: No
  Sender: FDA-Public Use
  Company Number: US-009507513-1208USA003149

PATIENT
  Age: 76 Year
  Sex: Female

DRUGS (2)
  1. ASMANEX TWISTHALER [Suspect]
     Indication: RESPIRATORY DISORDER
     Dosage: UNK
     Route: 045
     Dates: start: 20120720, end: 20120809
  2. ASMANEX TWISTHALER [Suspect]
     Dosage: UNK
     Route: 045
     Dates: start: 201208

REACTIONS (2)
  - Drug dose omission [Unknown]
  - Product quality issue [Unknown]
